FAERS Safety Report 8224494-9 (Version None)
Quarter: 2012Q1

REPORT INFORMATION
  Report Type: 
  Country: None (occurrence: None)
  Receive Date: 20120321
  Receipt Date: 20120319
  Transmission Date: 20120608
  Serious: Yes (Other)
  Sender: FDA-Public Use
  Company Number: US-JNJFOC-20120111513

PATIENT
  Age: 81 Year
  Sex: Female

DRUGS (7)
  1. ASPIRIN [Concomitant]
     Indication: ARTHRITIS
     Dosage: USING FOR 20 YEARS CALCULATED AS 1992
     Route: 065
     Dates: start: 19920101
  2. BENADRYL [Suspect]
     Route: 048
  3. BENADRYL [Suspect]
     Indication: DRUG HYPERSENSITIVITY
     Route: 048
     Dates: start: 20080101, end: 20080101
  4. SUDAFED 12 HOUR [Concomitant]
     Indication: SINUS CONGESTION
     Route: 065
     Dates: start: 20080101
  5. CHLOR-TRIMETON [Concomitant]
     Indication: ANTIALLERGIC THERAPY
     Dosage: TAKING DAILY FOR 5 YEARS (CALCULATED AS 2007)
     Route: 065
     Dates: start: 20070101
  6. THYROID TAB [Concomitant]
     Indication: THYROID DISORDER
     Route: 065
  7. TYLENOL ARTHRITIS [Concomitant]
     Indication: ARTHRITIS
     Route: 048

REACTIONS (2)
  - OFF LABEL USE [None]
  - CHEST DISCOMFORT [None]
